FAERS Safety Report 6672861-7 (Version None)
Quarter: 2010Q2

REPORT INFORMATION
  Report Type: 
  Country: None (occurrence: None)
  Receive Date: 20100408
  Receipt Date: 20100329
  Transmission Date: 20101027
  Serious: Yes (Hospitalization, Other)
  Sender: FDA-Public Use
  Company Number: PHHY2009MX21088

PATIENT
  Age: 71 Year
  Sex: Male

DRUGS (3)
  1. DIOVAN HCT [Suspect]
     Indication: HYPERTENSION
     Dosage: 160/12.5 MG PER DAY
     Route: 048
     Dates: start: 20050801
  2. DIOVAN HCT [Suspect]
     Dosage: 160/12.5 MG, 0.5 TABLET PER DAY
     Route: 048
  3. DIOVAN HCT [Suspect]
     Dosage: 1 DF, PER DAY
     Route: 048

REACTIONS (9)
  - APHASIA [None]
  - ARRHYTHMIA [None]
  - CARDIAC PACEMAKER INSERTION [None]
  - CEREBRAL INFARCTION [None]
  - CONVULSION [None]
  - DYSARTHRIA [None]
  - HEMIPLEGIA [None]
  - HYPOTENSION [None]
  - VISUAL ACUITY REDUCED [None]
